FAERS Safety Report 14044283 (Version 1)
Quarter: 2017Q4

REPORT INFORMATION
  Report Type: Report from Study
  Country: VE (occurrence: VE)
  Receive Date: 20171004
  Receipt Date: 20171004
  Transmission Date: 20180321
  Serious: Yes (Life-Threatening, Other)
  Sender: FDA-Public Use
  Company Number: VE-INCYTE CORPORATION-2017IN007860

PATIENT

DRUGS (4)
  1. VIDAZA [Concomitant]
     Active Substance: AZACITIDINE
     Indication: PRODUCT USED FOR UNKNOWN INDICATION
     Dosage: 5 CYCLES OF 5 AMPOULES
     Route: 065
     Dates: start: 20170725, end: 20170729
  2. EXJADE [Suspect]
     Active Substance: DEFERASIROX
     Indication: SERUM FERRITIN INCREASED
  3. JAKAVI [Suspect]
     Active Substance: RUXOLITINIB
     Indication: CHRONIC MYELOID LEUKAEMIA
     Dosage: 30 MG, QD (15 MG IN THE MORNING AND 15 MG AT NIGHT)
     Route: 065
  4. EXJADE [Suspect]
     Active Substance: DEFERASIROX
     Indication: CHRONIC MYELOID LEUKAEMIA
     Dosage: 500 MG, QD
     Route: 048
     Dates: start: 20170901

REACTIONS (7)
  - Anaemia [Unknown]
  - Colitis [Unknown]
  - Pain [Unknown]
  - Inflammation [Unknown]
  - Spleen disorder [Unknown]
  - Product use in unapproved indication [Unknown]
  - Hepatitis [Unknown]

NARRATIVE: CASE EVENT DATE: 20170814
